FAERS Safety Report 5135557-9 (Version None)
Quarter: 2006Q4

REPORT INFORMATION
  Report Type: 
  Country: None (occurrence: None)
  Receive Date: 20061026
  Receipt Date: 20061002
  Transmission Date: 20070319
  Serious: Yes (Life-Threatening)
  Sender: FDA-Public Use
  Company Number: JP-BRISTOL-MYERS SQUIBB COMPANY-13531967

PATIENT
  Age: 28 Year
  Sex: Male

DRUGS (5)
  1. VEPESID [Suspect]
     Indication: TESTIS CANCER
     Route: 041
     Dates: start: 20060320, end: 20060324
  2. BLEOMYCIN [Suspect]
     Indication: TESTIS CANCER
     Route: 042
     Dates: start: 20060220, end: 20060228
  3. RANDA [Suspect]
     Indication: TESTIS CANCER
     Route: 042
     Dates: start: 20060320, end: 20060324
  4. SAXIZON [Concomitant]
     Route: 042
     Dates: start: 20060220, end: 20060224
  5. SEROTONE [Concomitant]
     Route: 042
     Dates: start: 20060220, end: 20060224

REACTIONS (2)
  - DEEP VEIN THROMBOSIS [None]
  - VENA CAVA THROMBOSIS [None]
